FAERS Safety Report 12870772 (Version 1)
Quarter: 2016Q4

REPORT INFORMATION
  Report Type: Spontaneous
  Country: FR (occurrence: FR)
  Receive Date: 20161021
  Receipt Date: 20161021
  Transmission Date: 20170207
  Serious: Yes (Hospitalization)
  Sender: FDA-Public Use
  Company Number: FR-SA-2016SA191900

PATIENT
  Age: 63 Year
  Sex: Male

DRUGS (15)
  1. APROVEL [Suspect]
     Active Substance: IRBESARTAN
     Route: 048
     Dates: end: 20120426
  2. IXPRIM [Concomitant]
     Active Substance: ACETAMINOPHEN\TRAMADOL HYDROCHLORIDE
  3. BIPROFENID [Suspect]
     Active Substance: KETOPROFEN
     Route: 048
     Dates: end: 20120426
  4. OMEXEL [Concomitant]
     Active Substance: TAMSULOSIN HYDROCHLORIDE
  5. VOLTAREN [Concomitant]
     Active Substance: DICLOFENAC SODIUM
  6. CARBAMAZEPINE. [Concomitant]
     Active Substance: CARBAMAZEPINE
  7. GARDENAL [Concomitant]
     Active Substance: PHENOBARBITAL
  8. LARGACTIL [Concomitant]
     Active Substance: CHLORPROMAZINE
  9. INSULIN [Concomitant]
     Active Substance: INSULIN NOS
  10. METFORMIN [Suspect]
     Active Substance: METFORMIN HYDROCHLORIDE
     Route: 048
     Dates: end: 20120426
  11. TAHOR [Concomitant]
     Active Substance: ATORVASTATIN CALCIUM
  12. PERMIXON [Concomitant]
     Active Substance: SAW PALMETTO
  13. KARDEGIC [Concomitant]
     Active Substance: ASPIRIN LYSINE
  14. EFFERALGAN [Concomitant]
     Active Substance: ACETAMINOPHEN
  15. INEXIUM [Concomitant]
     Active Substance: ESOMEPRAZOLE

REACTIONS (3)
  - Lactic acidosis [Recovered/Resolved]
  - Acute kidney injury [Recovered/Resolved]
  - Hyperkalaemia [Recovered/Resolved]

NARRATIVE: CASE EVENT DATE: 201204
